FAERS Safety Report 15269266 (Version 1)
Quarter: 2018Q3

REPORT INFORMATION
  Report Type: Spontaneous
  Country: US (occurrence: US)
  Receive Date: 20180813
  Receipt Date: 20180813
  Transmission Date: 20181010
  Serious: No
  Sender: FDA-Public Use
  Company Number: US-ASTRAZENECA-2018SF01556

PATIENT
  Age: 19048 Day
  Sex: Male
  Weight: 86.2 kg

DRUGS (7)
  1. BYDUREON [Suspect]
     Active Substance: EXENATIDE
     Indication: TYPE 2 DIABETES MELLITUS
     Route: 058
  2. GLIPIZIDE. [Concomitant]
     Active Substance: GLIPIZIDE
     Indication: TYPE 2 DIABETES MELLITUS
     Route: 048
  3. ATORVASTATIN [Concomitant]
     Active Substance: ATORVASTATIN
     Indication: BLOOD CHOLESTEROL ABNORMAL
     Route: 048
  4. BABY ASPIRIN [Concomitant]
     Active Substance: ASPIRIN
     Indication: RENAL DISORDER
     Route: 048
  5. BABY ASPIRIN [Concomitant]
     Active Substance: ASPIRIN
     Indication: CARDIOVASCULAR EVENT PROPHYLAXIS
     Route: 048
  6. METFORMIN [Concomitant]
     Active Substance: METFORMIN HYDROCHLORIDE
     Indication: TYPE 2 DIABETES MELLITUS
     Route: 048
  7. LISINOPRIL. [Suspect]
     Active Substance: LISINOPRIL
     Indication: BLOOD PRESSURE ABNORMAL
     Route: 048
     Dates: start: 2008

REACTIONS (8)
  - Nausea [Recovered/Resolved]
  - Device leakage [Unknown]
  - Dizziness [Recovered/Resolved]
  - Device malfunction [Unknown]
  - Intentional product misuse [Unknown]
  - Wrong technique in product usage process [Unknown]
  - Headache [Recovered/Resolved]
  - Hyperhidrosis [Recovered/Resolved]

NARRATIVE: CASE EVENT DATE: 20180805
